FAERS Safety Report 5051178-0 (Version None)
Quarter: 2006Q3

REPORT INFORMATION
  Report Type: 
  Country: None (occurrence: None)
  Receive Date: 20060710
  Receipt Date: 20060626
  Transmission Date: 20061208
  Serious: Yes (Hospitalization, Other)
  Sender: FDA-Public Use
  Company Number: HQWYE935404AUG04

PATIENT
  Age: 50 Year
  Sex: Female
  Weight: 67.19 kg

DRUGS (1)
  1. PREMPHASE 14/14 [Suspect]
     Indication: HORMONE REPLACEMENT THERAPY

REACTIONS (10)
  - BREAST CANCER METASTATIC [None]
  - DEPRESSION [None]
  - EMOTIONAL DISORDER [None]
  - METRORRHAGIA [None]
  - NERVE INJURY [None]
  - OESTROGEN RECEPTOR ASSAY POSITIVE [None]
  - OSTEITIS DEFORMANS [None]
  - PAIN [None]
  - PROGESTERONE RECEPTOR ASSAY POSITIVE [None]
  - RETRACTED NIPPLE [None]
